FAERS Safety Report 6624198-X (Version None)
Quarter: 2010Q1

REPORT INFORMATION
  Report Type: 
  Country: None (occurrence: None)
  Receive Date: 20100310
  Receipt Date: 20091111
  Transmission Date: 20100710
  Serious: Yes (Other)
  Sender: FDA-Public Use
  Company Number: US-BIOGENIDEC-2009BI035063

PATIENT
  Age: 56 Year
  Sex: Female
  Weight: 234 kg

DRUGS (2)
  1. AVONEX [Suspect]
     Indication: MULTIPLE SCLEROSIS
     Route: 030
     Dates: start: 20031010
  2. GABAPENTIN [Concomitant]
     Indication: CONVULSION
     Route: 048

REACTIONS (4)
  - CONVULSION [None]
  - FEELING HOT [None]
  - HEADACHE [None]
  - MUSCLE SPASMS [None]
